FAERS Safety Report 21517193 (Version 6)
Quarter: 2024Q2

REPORT INFORMATION
  Report Type: Report from Study
  Country: US (occurrence: US)
  Receive Date: 20221028
  Receipt Date: 20240521
  Transmission Date: 20240716
  Serious: Yes (Hospitalization, Other)
  Sender: FDA-Public Use
  Company Number: US-ABBVIE-4175722

PATIENT
  Age: 82 Year
  Sex: Male

DRUGS (6)
  1. HUMIRA [Suspect]
     Active Substance: ADALIMUMAB
     Indication: Psoriasis
     Route: 058
  2. HUMIRA [Suspect]
     Active Substance: ADALIMUMAB
     Indication: Psoriasis
     Route: 058
  3. HUMIRA [Suspect]
     Active Substance: ADALIMUMAB
     Route: 058
     Dates: start: 20220513
  4. HUMIRA [Suspect]
     Active Substance: ADALIMUMAB
     Dosage: LAST ADMIN DATE MAY 2022
     Route: 058
     Dates: start: 20220505
  5. MODERNA COVID-19 VACCINE [Concomitant]
     Active Substance: ELASOMERAN
     Indication: COVID-19 immunisation
     Dosage: TIME INTERVAL: TOTAL: FREQUENCY: ONE IN ONCE
     Route: 030
  6. MODERNA COVID-19 VACCINE [Concomitant]
     Active Substance: ELASOMERAN
     Indication: COVID-19 immunisation
     Dosage: TIME INTERVAL: TOTAL: BOOSTER DOSE?FREQUENCY: ONE IN ONCE
     Route: 030

REACTIONS (19)
  - Nephrolithiasis [Recovering/Resolving]
  - Arthralgia [Recovering/Resolving]
  - Malignant melanoma [Recovering/Resolving]
  - Balance disorder [Unknown]
  - Rheumatoid arthritis [Not Recovered/Not Resolved]
  - Pain [Not Recovered/Not Resolved]
  - Eczema [Recovered/Resolved]
  - Peripheral swelling [Unknown]
  - Rhinorrhoea [Recovering/Resolving]
  - Carpal tunnel syndrome [Not Recovered/Not Resolved]
  - Transient ischaemic attack [Recovered/Resolved]
  - Pain in extremity [Unknown]
  - Insomnia [Unknown]
  - Gait disturbance [Unknown]
  - Hypersensitivity [Unknown]
  - Neoplasm malignant [Recovering/Resolving]
  - Fall [Unknown]
  - Contusion [Unknown]
  - Joint injury [Unknown]

NARRATIVE: CASE EVENT DATE: 20231201
